FAERS Safety Report 7254982-3 (Version None)
Quarter: 2011Q1

REPORT INFORMATION
  Report Type: 
  Country: None (occurrence: None)
  Receive Date: 20110129
  Receipt Date: 20100208
  Transmission Date: 20110831
  Serious: Yes (Hospitalization)
  Sender: FDA-Public Use
  Company Number: US-ABBOTT-10P-163-0624907-00

PATIENT
  Sex: Female
  Weight: 90.8 kg

DRUGS (4)
  1. HUMIRA [Suspect]
     Route: 058
     Dates: start: 20090416, end: 20090901
  2. PREDNISONE [Suspect]
     Indication: BRONCHITIS CHRONIC
     Dosage: 60 MG A DAY TAPERED DOWN TO 5 MG OVER TIME
     Dates: start: 20090801
  3. PREDNISONE [Suspect]
     Route: 048
  4. HUMIRA [Suspect]
     Indication: RHEUMATOID ARTHRITIS
     Route: 058
     Dates: start: 20090101, end: 20090219

REACTIONS (7)
  - PLEURAL INFECTION [None]
  - DYSPHAGIA [None]
  - DRUG INEFFECTIVE [None]
  - BRONCHITIS CHRONIC [None]
  - WEIGHT INCREASED [None]
  - CHOKING [None]
  - VISION BLURRED [None]
